FAERS Safety Report 4344406-8 (Version None)
Quarter: 2004Q2

REPORT INFORMATION
  Report Type: 
  Country: None (occurrence: None)
  Receive Date: 20040419
  Receipt Date: 20040405
  Transmission Date: 20050107
  Serious: Yes (Hospitalization)
  Sender: FDA-Public Use
  Company Number: FR-JNJFOC-20040400987

PATIENT
  Age: 22 Year
  Sex: Male
  Weight: 58 kg

DRUGS (7)
  1. HALDOL [Suspect]
     Dosage: 5 MG/ML, 2 IN 1 DAY, INTRA-MUSCULAR
     Route: 030
     Dates: start: 20040216, end: 20040220
  2. TERCIAN (CYAMEMAZINE) [Suspect]
     Indication: ADVERSE EVENT
     Dosage: 50 MG, 2 IN 1 DAY, INTRA-MUSCULAR
     Route: 030
     Dates: start: 20040216, end: 20040220
  3. IMOVANE (ZOPICLONE) [Concomitant]
  4. DEPAKOTE (VALOPROATE SEMISODIUM) [Concomitant]
  5. ATARAX [Concomitant]
  6. CLONAZEPAM [Concomitant]
  7. LEPTICUR (TROPATEPINE HYDROCHLORIDE) [Concomitant]

REACTIONS (4)
  - CONFUSIONAL STATE [None]
  - HYPERTONIA [None]
  - RHABDOMYOLYSIS [None]
  - SOMNOLENCE [None]
